FAERS Safety Report 17158686 (Version 2)
Quarter: 2020Q1

REPORT INFORMATION
  Report Type: Spontaneous
  Country: PL (occurrence: PL)
  Receive Date: 20191216
  Receipt Date: 20200312
  Transmission Date: 20200409
  Serious: Yes (Hospitalization, Other)
  Sender: FDA-Public Use
  Company Number: NVSC2019PL068563

PATIENT
  Age: 72 Year
  Sex: Male

DRUGS (2)
  1. METHOTREXATE. [Suspect]
     Active Substance: METHOTREXATE
     Indication: PSORIASIS
     Dosage: 25 MG, QD
     Route: 065
  2. FOLIC ACID. [Suspect]
     Active Substance: FOLIC ACID
     Indication: PSORIASIS
     Dosage: 15 MG, QW
     Route: 065

REACTIONS (28)
  - Coagulopathy [Unknown]
  - Cognitive disorder [Unknown]
  - Lip erosion [Unknown]
  - Product use in unapproved indication [Unknown]
  - Hyperbilirubinaemia [Unknown]
  - Pain of skin [Unknown]
  - Lip scab [Unknown]
  - Tongue discolouration [Unknown]
  - Mucosal inflammation [Unknown]
  - Erythema [Unknown]
  - Renal failure [Recovering/Resolving]
  - Rash maculo-papular [Unknown]
  - Pyrexia [Recovered/Resolved]
  - Overdose [Unknown]
  - Inappropriate schedule of product administration [Unknown]
  - Secretion discharge [Unknown]
  - Skin necrosis [Unknown]
  - Incorrect dose administered [Unknown]
  - Agranulocytosis [Unknown]
  - Oral mucosa erosion [Recovering/Resolving]
  - Pain in extremity [Unknown]
  - Hypoalbuminaemia [Unknown]
  - Pain [Unknown]
  - Pancytopenia [Unknown]
  - Skin swelling [Unknown]
  - Oral pain [Unknown]
  - Dermatitis [Unknown]
  - Inflammatory marker increased [Recovering/Resolving]
